FAERS Safety Report 7687419-0 (Version None)
Quarter: 2011Q3

REPORT INFORMATION
  Report Type: 
  Country: None (occurrence: None)
  Receive Date: 20110816
  Receipt Date: 20110311
  Transmission Date: 20111222
  Serious: Yes (Other)
  Sender: FDA-Public Use
  Company Number: US-MERCK-1108USA01598

PATIENT
  Age: 69 Year
  Sex: Male
  Weight: 132 kg

DRUGS (5)
  1. CARVEDILOL [Concomitant]
     Route: 065
  2. AMLODIPINE BESYLATE [Concomitant]
     Route: 065
  3. PROSCAR [Suspect]
     Indication: POLLAKIURIA
     Route: 048
     Dates: start: 20110214, end: 20110217
  4. PROSCAR [Suspect]
     Indication: MICTURITION URGENCY
     Route: 048
     Dates: start: 20110214, end: 20110217
  5. GLIPIZIDE [Concomitant]
     Indication: DIABETES MELLITUS
     Route: 065

REACTIONS (5)
  - GOUT [None]
  - ADVERSE EVENT [None]
  - DYSURIA [None]
  - PENIS DISORDER [None]
  - BLOOD GLUCOSE INCREASED [None]
